FAERS Safety Report 6376348-0 (Version None)
Quarter: 2009Q3

REPORT INFORMATION
  Report Type: 
  Country: None (occurrence: None)
  Receive Date: 20090925
  Receipt Date: 20090923
  Transmission Date: 20100115
  Serious: Yes (Other)
  Sender: FDA-Public Use
  Company Number: DE-ALLERGAN-0911804US

PATIENT
  Age: 49 Year
  Sex: Male

DRUGS (1)
  1. LUMIGAN [Suspect]
     Indication: PIGMENTARY GLAUCOMA
     Dosage: UNK
     Route: 047
     Dates: start: 20090227, end: 20090710

REACTIONS (1)
  - MACULAR OEDEMA [None]
